FAERS Safety Report 23836573 (Version 1)
Quarter: 2024Q2

REPORT INFORMATION
  Report Type: Other
  Country: US (occurrence: None)
  Receive Date: 20240509
  Receipt Date: 20240509
  Transmission Date: 20240715
  Serious: Yes (Other)
  Sender: FDA-Public Use
  Company Number: US-ROCHE-3560003

PATIENT

DRUGS (4)
  1. ATEZOLIZUMAB [Suspect]
     Active Substance: ATEZOLIZUMAB
     Indication: Immunosuppression
     Route: 065
  2. NIVOLUMAB [Suspect]
     Active Substance: NIVOLUMAB
     Indication: Immunosuppression
     Route: 065
  3. PEMBROLIZUMAB [Suspect]
     Active Substance: PEMBROLIZUMAB
     Indication: Immunosuppression
     Route: 065
  4. DURVALUMAB [Suspect]
     Active Substance: DURVALUMAB
     Indication: Immunosuppression
     Route: 065

REACTIONS (9)
  - Diarrhoea [Unknown]
  - Musculoskeletal pain [Unknown]
  - Pneumonitis [Unknown]
  - Pneumonia [Unknown]
  - Cellulitis [Unknown]
  - Fatigue [Unknown]
  - Rash [Unknown]
  - Arrhythmia [Unknown]
  - Anaemia [Unknown]
